FAERS Safety Report 21609695 (Version 2)
Quarter: 2022Q4

REPORT INFORMATION
  Report Type: Spontaneous
  Country: NL (occurrence: NL)
  Receive Date: 20221117
  Receipt Date: 20221201
  Transmission Date: 20230113
  Serious: Yes (Life-Threatening, Hospitalization)
  Sender: FDA-Public Use
  Company Number: None

PATIENT
  Sex: Male
  Weight: 75 kg

DRUGS (5)
  1. OLANZAPINE [Suspect]
     Active Substance: OLANZAPINE
     Indication: Psychotic disorder
     Dosage: 20 MG, DAILY (1 X PER DAY 1 PIECE)
     Route: 065
     Dates: start: 20150316
  2. OLANZAPINE [Suspect]
     Active Substance: OLANZAPINE
     Indication: Personality disorder
  3. NORTRIPTYLINE [Suspect]
     Active Substance: NORTRIPTYLINE
     Indication: Anxiety
     Dosage: 25 MG, DAILY
     Route: 065
     Dates: start: 20170101
  4. TEMAZEPAM [Suspect]
     Active Substance: TEMAZEPAM
     Indication: Anxiety
     Dosage: 10 MG, DAILY, IF NECCESARY
     Route: 065
     Dates: start: 20170101
  5. CITALOPRAM [Concomitant]
     Active Substance: CITALOPRAM HYDROBROMIDE
     Indication: Product used for unknown indication
     Dosage: 20 MG

REACTIONS (6)
  - Depressed level of consciousness [Unknown]
  - Electrocardiogram abnormal [Unknown]
  - Suicide attempt [Unknown]
  - Poisoning [Unknown]
  - Aspiration [Unknown]
  - Snoring [Unknown]
